FAERS Safety Report 8021687-0 (Version None)
Quarter: 2012Q1

REPORT INFORMATION
  Report Type: 
  Country: None (occurrence: None)
  Receive Date: 20120104
  Receipt Date: 20111228
  Transmission Date: 20120608
  Serious: Yes (Other)
  Sender: FDA-Public Use
  Company Number: PHHY2011CA113603

PATIENT

DRUGS (1)
  1. ALISKIREN [Suspect]
     Dosage: 150 MG, UNK
     Dates: end: 20110930

REACTIONS (4)
  - HYDRONEPHROSIS [None]
  - HEART RATE INCREASED [None]
  - DRUG INEFFECTIVE [None]
  - BLOOD PRESSURE INCREASED [None]
